FAERS Safety Report 13917442 (Version 8)
Quarter: 2018Q3

REPORT INFORMATION
  Report Type: Spontaneous
  Country: SE (occurrence: SE)
  Receive Date: 20170829
  Receipt Date: 20180709
  Transmission Date: 20181010
  Serious: Yes (Hospitalization, Other)
  Sender: FDA-Public Use
  Company Number: SE-PFIZER INC-2017342276

PATIENT
  Age: 32 Year
  Sex: Female

DRUGS (13)
  1. LYRICA [Suspect]
     Active Substance: PREGABALIN
     Indication: BIPOLAR DISORDER
  2. LYRICA [Suspect]
     Active Substance: PREGABALIN
     Indication: MENTAL DISORDER
  3. EFEXOR DEPOT [Suspect]
     Active Substance: VENLAFAXINE HYDROCHLORIDE
     Indication: MENTAL DISORDER
  4. EFEXOR DEPOT [Suspect]
     Active Substance: VENLAFAXINE HYDROCHLORIDE
     Indication: ANXIETY
  5. SERTRALINE HCL [Suspect]
     Active Substance: SERTRALINE HYDROCHLORIDE
     Indication: DEPRESSION
     Dosage: UNK
     Dates: start: 2000
  6. IMOVANE [Suspect]
     Active Substance: ZOPICLONE
     Dosage: 2.5 MG, 1X/DAY (EVERY EVENING)
     Dates: start: 2009
  7. QUETIAPIN [Suspect]
     Active Substance: QUETIAPINE
     Dosage: UNK
  8. ZOLOFT [Suspect]
     Active Substance: SERTRALINE HYDROCHLORIDE
     Dosage: UNK
  9. RITALIN [Suspect]
     Active Substance: METHYLPHENIDATE HYDROCHLORIDE
     Dosage: 140 MG, UNK
     Dates: start: 2009
  10. EFEXOR DEPOT [Suspect]
     Active Substance: VENLAFAXINE HYDROCHLORIDE
     Indication: BIPOLAR DISORDER
  11. ATARAX [Suspect]
     Active Substance: HYDROXYZINE HYDROCHLORIDE
     Dosage: UNK
  12. LYRICA [Suspect]
     Active Substance: PREGABALIN
     Indication: DEPRESSION
     Dosage: UNK
  13. EFEXOR DEPOT [Suspect]
     Active Substance: VENLAFAXINE HYDROCHLORIDE
     Indication: DEPRESSION
     Dosage: UNK

REACTIONS (29)
  - Pelvic inflammatory disease [Not Recovered/Not Resolved]
  - Social anxiety disorder [Not Recovered/Not Resolved]
  - Arthralgia [Not Recovered/Not Resolved]
  - Pain in extremity [Not Recovered/Not Resolved]
  - Nightmare [Unknown]
  - Rash [Unknown]
  - Negative thoughts [Recovered/Resolved]
  - Pain [Not Recovered/Not Resolved]
  - Eating disorder [Not Recovered/Not Resolved]
  - Burnout syndrome [Unknown]
  - Libido decreased [Not Recovered/Not Resolved]
  - Renal disorder [Unknown]
  - Dysuria [Not Recovered/Not Resolved]
  - Cardiac disorder [Unknown]
  - Weight decreased [Unknown]
  - Gastric disorder [Not Recovered/Not Resolved]
  - Condition aggravated [Not Recovered/Not Resolved]
  - Drug ineffective for unapproved indication [Unknown]
  - Diplopia [Unknown]
  - Back pain [Not Recovered/Not Resolved]
  - Psychiatric symptom [Unknown]
  - Nausea [Recovered/Resolved]
  - Emotional distress [Unknown]
  - Panic attack [Not Recovered/Not Resolved]
  - Somnambulism [Recovered/Resolved]
  - Tremor [Unknown]
  - Fear [Unknown]
  - Malaise [Unknown]
  - Tinnitus [Not Recovered/Not Resolved]

NARRATIVE: CASE EVENT DATE: 2000
